FAERS Safety Report 23086061 (Version 1)
Quarter: 2023Q4

REPORT INFORMATION
  Report Type: Report from Study
  Country: US (occurrence: US)
  Receive Date: 20231019
  Receipt Date: 20231019
  Transmission Date: 20240109
  Serious: Yes (Other)
  Sender: FDA-Public Use
  Company Number: US-JAZZ PHARMACEUTICALS-2023-US-017611

PATIENT
  Sex: Female

DRUGS (1)
  1. XYWAV [Suspect]
     Active Substance: CALCIUM OXYBATE\MAGNESIUM OXYBATE\POTASSIUM OXYBATE\SODIUM OXYBATE
     Indication: Hypersomnia
     Dosage: 1.75 GRAM

REACTIONS (7)
  - Hallucination [Unknown]
  - Hypoaesthesia [Unknown]
  - Muscular weakness [Unknown]
  - Heart rate increased [Unknown]
  - Abnormal dreams [Unknown]
  - Insomnia [Unknown]
  - Nausea [Unknown]
